FAERS Safety Report 5235084-4 (Version None)
Quarter: 2007Q1

REPORT INFORMATION
  Report Type: 
  Country: None (occurrence: None)
  Receive Date: 20070207
  Receipt Date: 20070123
  Transmission Date: 20070707
  Serious: Yes (Hospitalization)
  Sender: FDA-Public Use
  Company Number: 2007EU000215

PATIENT
  Age: 54 Year
  Sex: Male

DRUGS (6)
  1. PROGRAF [Suspect]
     Indication: RENAL TRANSPLANT
     Dosage: 5 MG, ORAL
     Route: 048
  2. CELLCEPT [Suspect]
     Indication: RENAL TRANSPLANT
     Dosage: 1 G, ORAL
     Route: 048
  3. SOLU-PRED (METHYLPREDNISOLONE) [Concomitant]
  4. AMLODIPINE BESYLATE [Concomitant]
  5. ATORVASTATIN CALCIUM [Concomitant]
  6. INEXIUM (ESOPMEPRAZOLE MAGNESIUM) [Concomitant]

REACTIONS (14)
  - ABDOMINAL PAIN [None]
  - AGRANULOCYTOSIS [None]
  - CHILLS [None]
  - CULTURE URINE POSITIVE [None]
  - DIARRHOEA [None]
  - EXTRAVASATION [None]
  - INFLAMMATION [None]
  - LEUKOPENIA [None]
  - NEUTROPENIA [None]
  - PHLEBITIS [None]
  - PYELONEPHRITIS [None]
  - STAPHYLOCOCCAL INFECTION [None]
  - STREPTOCOCCAL SEPSIS [None]
  - VOMITING [None]
